FAERS Safety Report 7817084 (Version 5)
Quarter: 2013Q3

REPORT INFORMATION
  Report Type: Report from Study
  Country: US (occurrence: US)
  Receive Date: 20110217
  Receipt Date: 20130724
  Transmission Date: 20140515
  Serious: Yes (Life-Threatening, Hospitalization, Other)
  Sender: FDA-Public Use
  Company Number: PHHY2011US12144

PATIENT
  Age: 49 Year
  Sex: Female

DRUGS (1)
  1. GILENYA [Suspect]
     Indication: MULTIPLE SCLEROSIS
     Dosage: 0.5 MG, DAILY
     Route: 048
     Dates: start: 20101216, end: 20110208

REACTIONS (12)
  - Feeling abnormal [Recovered/Resolved]
  - Immune system disorder [Recovered/Resolved]
  - White blood cell count decreased [Recovered/Resolved]
  - Lymphocyte count decreased [Recovered/Resolved]
  - Hepatic infection [Recovered/Resolved]
  - Liver function test abnormal [Recovered/Resolved]
  - Infection [Recovered/Resolved]
  - Vomiting [Recovered/Resolved]
  - Pneumonia [Recovered/Resolved]
  - Chills [Recovered/Resolved]
  - Pyrexia [Recovered/Resolved]
  - Gait disturbance [Recovered/Resolved]
